FAERS Safety Report 12758290 (Version 1)
Quarter: 2016Q3

REPORT INFORMATION
  Report Type: Spontaneous
  Country: US (occurrence: US)
  Receive Date: 20160917
  Receipt Date: 20160917
  Transmission Date: 20161109
  Serious: Yes (Disabling)
  Sender: FDA-Public Use
  Company Number: None

PATIENT
  Age: 61 Year
  Sex: Male
  Weight: 108 kg

DRUGS (12)
  1. LEVOFLOXACIN. [Suspect]
     Active Substance: LEVOFLOXACIN
     Indication: PNEUMONIA
     Route: 048
     Dates: start: 20160623, end: 20160628
  2. NORCO [Concomitant]
     Active Substance: ACETAMINOPHEN\HYDROCODONE BITARTRATE
  3. COQ10 [Concomitant]
     Active Substance: UBIDECARENONE
  4. FISH OIL [Concomitant]
     Active Substance: FISH OIL
  5. VITAMIN E [Concomitant]
     Active Substance: .ALPHA.-TOCOPHEROL
  6. JOINT SUPPORT SUPPLEMENT [Concomitant]
  7. XANAX [Concomitant]
     Active Substance: ALPRAZOLAM
  8. MULTI VITAMIN [Concomitant]
     Active Substance: VITAMINS
  9. L-GLUTAMINE /00503401/ [Concomitant]
     Active Substance: GLUTAMINE
  10. CYPRIONATE [Concomitant]
  11. MAOI (MONOAMINE OXIDASE INHIBITOR) [Concomitant]
  12. MAGNESIUM [Concomitant]
     Active Substance: MAGNESIUM

REACTIONS (12)
  - Musculoskeletal pain [None]
  - Neck pain [None]
  - Pain in extremity [None]
  - Tendon disorder [None]
  - Decreased activity [None]
  - Paraesthesia [None]
  - Contraindicated product administered [None]
  - Pain [None]
  - Arthralgia [None]
  - Back pain [None]
  - Insomnia [None]
  - Hypoaesthesia [None]

NARRATIVE: CASE EVENT DATE: 20160630
